FAERS Safety Report 4655645-0 (Version None)
Quarter: 2005Q2

REPORT INFORMATION
  Report Type: 
  Country: None (occurrence: None)
  Receive Date: 20050505
  Receipt Date: 20050418
  Transmission Date: 20051028
  Serious: Yes (Hospitalization)
  Sender: FDA-Public Use
  Company Number: USA050495854

PATIENT
  Age: 61 Year
  Sex: Male
  Weight: 64 kg

DRUGS (5)
  1. HUMALOG [Suspect]
     Indication: DIABETES MELLITUS
     Dates: start: 19990101
  2. HUMULIN L [Suspect]
     Indication: DIABETES MELLITUS
     Dosage: 15 U IN THE MORNING
     Dates: start: 19990101
  3. CLONIDINE [Concomitant]
  4. LIPRAM [Concomitant]
  5. TOPROL-XL [Concomitant]

REACTIONS (9)
  - ASTHENIA [None]
  - BLOOD GLUCOSE DECREASED [None]
  - DIZZINESS POSTURAL [None]
  - INCORRECT DOSE ADMINISTERED [None]
  - MEDICAL DEVICE COMPLICATION [None]
  - NECK PAIN [None]
  - PARAESTHESIA ORAL [None]
  - SHOULDER PAIN [None]
  - TREMOR [None]
